FAERS Safety Report 8561303-2 (Version None)
Quarter: 2012Q3

REPORT INFORMATION
  Report Type: 
  Country: None (occurrence: None)
  Receive Date: 20120727
  Receipt Date: 20120727
  Transmission Date: 20120928
  Serious: Yes (Hospitalization)
  Sender: FDA-Public Use
  Company Number: None

PATIENT
  Age: 71 Year
  Sex: Male
  Weight: 79.2 kg

DRUGS (7)
  1. SIMVASTATIN [Concomitant]
  2. KEPPRA [Concomitant]
  3. CITALOPRAM HYDROBROMIDE [Concomitant]
  4. COUMADIN [Suspect]
     Indication: VENTRICULAR ARRHYTHMIA
     Dosage: 6 MG, W, PO RECENTLY RESUMED
     Route: 048
  5. TERBAMATINE [Concomitant]
  6. COUMADIN [Suspect]
     Indication: VENTRICULAR ARRHYTHMIA
     Dosage: 3 MG, SSMTTHF, PO RECENTLY RESUMED
     Route: 048
  7. VITAMIN D [Concomitant]

REACTIONS (3)
  - FALL [None]
  - SUBDURAL HAEMORRHAGE [None]
  - HAEMORRHAGE INTRACRANIAL [None]
